FAERS Safety Report 6095609-6 (Version None)
Quarter: 2009Q1

REPORT INFORMATION
  Report Type: 
  Country: None (occurrence: None)
  Receive Date: 20090227
  Receipt Date: 20080506
  Transmission Date: 20090719
  Serious: No
  Sender: FDA-Public Use
  Company Number: A0726584A

PATIENT
  Age: 59 Year
  Sex: Female

DRUGS (4)
  1. LAMICTAL [Suspect]
     Indication: ANXIETY
     Dosage: 200MG TWICE PER DAY
     Route: 048
     Dates: start: 20060101
  2. CALCIUM D [Concomitant]
  3. KLONOPIN [Concomitant]
  4. STATINS [Concomitant]

REACTIONS (2)
  - ERUCTATION [None]
  - NAUSEA [None]
